FAERS Safety Report 4441621-X (Version None)
Quarter: 2004Q3

REPORT INFORMATION
  Report Type: 
  Country: None (occurrence: None)
  Receive Date: 20040907
  Receipt Date: 20040705
  Transmission Date: 20050211
  Serious: No
  Sender: FDA-Public Use
  Company Number: 200412259JP

PATIENT
  Age: 36 Year
  Sex: Female
  Weight: 48 kg

DRUGS (3)
  1. KETEK [Suspect]
     Indication: BRONCHITIS ACUTE
     Route: 048
     Dates: start: 20040624, end: 20040629
  2. LIGHTGEN T [Concomitant]
     Indication: BRONCHITIS ACUTE
     Route: 048
     Dates: start: 20040624, end: 20040628
  3. DAN RICH [Concomitant]
     Indication: BRONCHITIS ACUTE
     Dosage: DOSE: 1 CAPSULE
     Route: 048
     Dates: start: 20040624, end: 20040628

REACTIONS (5)
  - CEREBRAL HAEMORRHAGE [None]
  - MEDICATION ERROR [None]
  - SPEECH DISORDER [None]
  - TONGUE DISORDER [None]
  - VISION BLURRED [None]
